FAERS Safety Report 7979562-3 (Version None)
Quarter: 2011Q4

REPORT INFORMATION
  Report Type: 
  Country: None (occurrence: None)
  Receive Date: 20111214
  Receipt Date: 20111207
  Transmission Date: 20120403
  Serious: Yes (Other)
  Sender: FDA-Public Use
  Company Number: AR-ABBOTT-11P-007-0882322-00

PATIENT

DRUGS (1)
  1. NIASPAN [Suspect]
     Indication: HYPERLIPIDAEMIA
     Dosage: NOT REPORTED
     Route: 048

REACTIONS (1)
  - LUNG NEOPLASM MALIGNANT [None]
